FAERS Safety Report 17110959 (Version 1)
Quarter: 2019Q4

REPORT INFORMATION
  Report Type: Spontaneous
  Country: US (occurrence: US)
  Receive Date: 20191203
  Receipt Date: 20191203
  Transmission Date: 20200122
  Serious: Yes (Other)
  Sender: FDA-Public Use
  Company Number: None

PATIENT
  Sex: Female

DRUGS (2)
  1. SUMATRIPTAN 100MG [Suspect]
     Active Substance: SUMATRIPTAN
  2. NAPROXEN 500 MG [Suspect]
     Active Substance: NAPROXEN

REACTIONS (1)
  - Therapy non-responder [None]
